FAERS Safety Report 25738517 (Version 2)
Quarter: 2025Q3

REPORT INFORMATION
  Report Type: Report from Study
  Country: CN (occurrence: CN)
  Receive Date: 20250829
  Receipt Date: 20250903
  Transmission Date: 20251020
  Serious: Yes (Other)
  Sender: ABBVIE
  Company Number: CN-ABBVIE-6431724

PATIENT
  Age: 31 Year
  Sex: Female
  Weight: 57 kg

DRUGS (14)
  1. RINVOQ [Suspect]
     Active Substance: UPADACITINIB
     Indication: Dermatitis atopic
     Dosage: FORM STRENGTH: 15 MILLIGRAM
     Route: 048
     Dates: start: 20250106, end: 20250319
  2. RINVOQ [Suspect]
     Active Substance: UPADACITINIB
     Indication: Dermatitis atopic
     Dosage: FORM STRENGTH: 15 MILLIGRAM
     Route: 048
     Dates: start: 20250717
  3. RINVOQ [Suspect]
     Active Substance: UPADACITINIB
     Indication: Dermatitis atopic
     Dosage: FORM STRENGTH: 15 MILLIGRAM
     Route: 048
     Dates: start: 20250320, end: 20250606
  4. CHLORCYCLIZINE HYDROCHLORIDE [Concomitant]
     Active Substance: CHLORCYCLIZINE HYDROCHLORIDE
     Indication: Dermatitis atopic
     Route: 061
     Dates: start: 20250106, end: 20250112
  5. VITAMIN E [Concomitant]
     Active Substance: .ALPHA.-TOCOPHEROL
     Indication: Dermatitis atopic
     Dosage: EMULSION
     Route: 061
     Dates: start: 20250117, end: 20250123
  6. Etofesalamide [Concomitant]
     Indication: Dermatitis atopic
     Route: 061
     Dates: start: 20250822
  7. CHLORTETRACYCLINE HYDROCHLORIDE [Concomitant]
     Active Substance: CHLORTETRACYCLINE HYDROCHLORIDE
     Indication: Dermatitis atopic
     Route: 061
     Dates: start: 20250415, end: 20250513
  8. ADAPALENE [Concomitant]
     Active Substance: ADAPALENE
     Indication: Dermatitis atopic
     Route: 061
     Dates: start: 20250415, end: 20250513
  9. BORIC ACID\ZINC OXIDE [Concomitant]
     Active Substance: BORIC ACID\ZINC OXIDE
     Indication: Dermatitis atopic
     Route: 061
     Dates: end: 20250112
  10. Human epidermal growth factor [Concomitant]
     Indication: Dermatitis atopic
     Route: 061
     Dates: start: 20250822
  11. FLUTICASONE PROPIONATE [Concomitant]
     Active Substance: FLUTICASONE PROPIONATE
     Indication: Dermatitis atopic
     Route: 061
     Dates: start: 20250117, end: 20250123
  12. DIPHENHYDRAMINE HYDROCHLORIDE [Concomitant]
     Active Substance: DIPHENHYDRAMINE HYDROCHLORIDE
     Indication: Dermatitis atopic
     Route: 048
     Dates: start: 20250106, end: 20250112
  13. EMEDASTINE DIFUMARATE [Concomitant]
     Active Substance: EMEDASTINE DIFUMARATE
     Indication: Dermatitis atopic
     Dosage: SUSTAINED-RELEASE CAPSULES
     Route: 048
     Dates: start: 20250106, end: 20250216
  14. Clindamycin Hydrochloride and Metronidazole [Concomitant]
     Indication: Dermatitis atopic
     Route: 061
     Dates: start: 20250415, end: 20250513

REACTIONS (3)
  - Abortion induced [Unknown]
  - Maternal exposure during pregnancy [Unknown]
  - Cheilitis [Recovering/Resolving]

NARRATIVE: CASE EVENT DATE: 20250101
